FAERS Safety Report 9316225 (Version 2)
Quarter: 2014Q1

REPORT INFORMATION
  Report Type: Spontaneous
  Country: IT (occurrence: None)
  Receive Date: 20130521
  Receipt Date: 20140122
  Transmission Date: 20141002
  Serious: Yes (Other)
  Sender: FDA-Public Use
  Company Number: AUR-APL-2013-03438

PATIENT
  Age: 11 Year
  Sex: Male
  Weight: 55 kg

DRUGS (2)
  1. RISPERIDONE [Suspect]
     Indication: PSYCHOTIC BEHAVIOUR
     Dosage: (2 MG,1 D),ORAL
     Route: 048
     Dates: start: 20121119, end: 20121203
  2. HALOPERIDOL [Suspect]
     Indication: PSYCHOTIC BEHAVIOUR
     Route: 048
     Dates: start: 20121129, end: 20121130

REACTIONS (2)
  - Dyslexia [None]
  - Drug interaction [None]
